FAERS Safety Report 7397728-0 (Version None)
Quarter: 2011Q2

REPORT INFORMATION
  Report Type: 
  Country: None (occurrence: None)
  Receive Date: 20110406
  Receipt Date: 20110404
  Transmission Date: 20111010
  Serious: Yes (Death, Hospitalization)
  Sender: FDA-Public Use
  Company Number: TR-ABBOTT-10P-161-0663550-00

PATIENT
  Sex: Male
  Weight: 75 kg

DRUGS (8)
  1. IZONIAZID 100 MG+VITAMIN B6 25 MG [Concomitant]
     Indication: PRODUCT USED FOR UNKNOWN INDICATION
     Route: 048
     Dates: end: 20101109
  2. LISINOPRIL 20 MG + HYDROCHLOROTIAZIDE 12.5 MG [Concomitant]
     Indication: PRODUCT USED FOR UNKNOWN INDICATION
     Route: 048
     Dates: end: 20101109
  3. HUMIRA [Suspect]
     Indication: RHEUMATOID ARTHRITIS
     Route: 058
     Dates: end: 20101106
  4. DOXACOZINE MESYLATE [Concomitant]
     Indication: PRODUCT USED FOR UNKNOWN INDICATION
     Route: 048
     Dates: end: 20101109
  5. CALIUM CORBONATE 2500MG + VITAMINE D3 880 IU [Concomitant]
     Indication: PRODUCT USED FOR UNKNOWN INDICATION
     Route: 048
     Dates: end: 20101109
  6. ALENDRONATE SODIUM [Concomitant]
     Indication: PRODUCT USED FOR UNKNOWN INDICATION
     Route: 048
     Dates: end: 20101109
  7. PREDNISOLONE [Concomitant]
     Indication: PRODUCT USED FOR UNKNOWN INDICATION
     Dosage: 1/2 IN THE MORNING AND 1 IN THE EVENING
     Route: 048
     Dates: end: 20101109
  8. AMLODIPINE BESYLATE [Concomitant]
     Indication: PRODUCT USED FOR UNKNOWN INDICATION
     Route: 048
     Dates: end: 20101109

REACTIONS (5)
  - MYOCARDIAL INFARCTION [None]
  - RENAL FAILURE [None]
  - MUSCULOSKELETAL STIFFNESS [None]
  - RENAL DISORDER [None]
  - OEDEMA PERIPHERAL [None]
